FAERS Safety Report 6282548-0 (Version None)
Quarter: 2009Q3

REPORT INFORMATION
  Report Type: 
  Country: None (occurrence: None)
  Receive Date: 20090724
  Receipt Date: 20090714
  Transmission Date: 20100115
  Serious: Yes (Other)
  Sender: FDA-Public Use
  Company Number: US-BAYER-200911401BCC

PATIENT
  Age: 72 Year
  Sex: Male
  Weight: 113 kg

DRUGS (9)
  1. ASPIRIN [Suspect]
     Indication: PROPHYLAXIS
     Dosage: TOTAL DAILY DOSE: 81 MG  UNIT DOSE: 81 MG
     Route: 048
     Dates: end: 20080801
  2. ASPIRIN [Suspect]
     Dosage: TOTAL DAILY DOSE: 81 MG  UNIT DOSE: 81 MG
     Route: 048
     Dates: start: 20090601, end: 20090601
  3. FENTANYL-100 [Concomitant]
     Indication: PAIN
     Route: 061
     Dates: start: 20090101
  4. KAPIDEX [Concomitant]
     Route: 065
     Dates: start: 20090601
  5. GLYBURIDE AND METFORMIN HCL [Concomitant]
     Route: 065
  6. FUROSEMIDE [Concomitant]
     Route: 065
  7. MOEXIPRIL/ HCTZ [Concomitant]
     Route: 065
  8. ACTOS [Concomitant]
     Route: 065
  9. VYTORIN [Concomitant]
     Route: 065

REACTIONS (5)
  - BOWEL MOVEMENT IRREGULARITY [None]
  - HAEMOGLOBIN DECREASED [None]
  - HAEMORRHOIDS [None]
  - PAIN IN EXTREMITY [None]
  - RECTAL HAEMORRHAGE [None]
